FAERS Safety Report 7999071-5 (Version None)
Quarter: 2011Q4

REPORT INFORMATION
  Report Type: 
  Country: None (occurrence: None)
  Receive Date: 20111221
  Receipt Date: 20111213
  Transmission Date: 20120403
  Serious: Yes (Hospitalization, Other)
  Sender: FDA-Public Use
  Company Number: US-ROCHE-1021872

PATIENT
  Sex: Female

DRUGS (10)
  1. POTASSIUM [Concomitant]
  2. PRILOSEC [Concomitant]
  3. LANOXIN [Concomitant]
  4. EFFEXOR [Concomitant]
  5. SPIRONOLACTONE [Concomitant]
  6. REVATIO [Concomitant]
  7. FOLIC ACID [Concomitant]
  8. SEROQUEL [Concomitant]
  9. OMALIZUMAB [Suspect]
     Indication: ASTHMA
     Dosage: 3 INJECTIONS
     Route: 058
     Dates: start: 20110315, end: 20110606
  10. LOVENOX [Concomitant]

REACTIONS (6)
  - SWELLING [None]
  - CEREBROVASCULAR ACCIDENT [None]
  - INTRACARDIAC THROMBUS [None]
  - CHEST PAIN [None]
  - SWELLING FACE [None]
  - PULMONARY THROMBOSIS [None]
